FAERS Safety Report 9401563 (Version 1)
Quarter: 2013Q3

REPORT INFORMATION
  Report Type: Spontaneous
  Country: US (occurrence: US)
  Receive Date: 20130716
  Receipt Date: 20130716
  Transmission Date: 20140515
  Serious: No
  Sender: FDA-Public Use
  Company Number: US-009507513-1307USA007704

PATIENT
  Sex: 0

DRUGS (1)
  1. COSOPT [Suspect]
     Route: 047

REACTIONS (1)
  - Eye irritation [Unknown]
